FAERS Safety Report 6753118-2 (Version None)
Quarter: 2010Q2

REPORT INFORMATION
  Report Type: 
  Country: None (occurrence: None)
  Receive Date: 20100603
  Receipt Date: 20100521
  Transmission Date: 20101027
  Serious: Yes (Hospitalization)
  Sender: FDA-Public Use
  Company Number: FR-PFIZER INC-2010066594

PATIENT
  Age: 77 Year
  Sex: Male

DRUGS (8)
  1. ALPRAZOLAM [Suspect]
     Indication: ABNORMAL BEHAVIOUR
     Dosage: 0.25 MG, UNK
     Route: 048
     Dates: start: 20100414, end: 20100429
  2. ARICEPT [Suspect]
     Indication: DEMENTIA ALZHEIMER'S TYPE
     Dosage: 10 MG, 1X/DAY
     Dates: end: 20100503
  3. MEMANTINE HYDROCHLORIDE [Suspect]
     Indication: DEMENTIA ALZHEIMER'S TYPE
     Dosage: 10 MG, 1X/DAY
     Route: 048
     Dates: start: 20081209, end: 20100503
  4. CORGARD [Suspect]
     Indication: HYPERTENSION
     Dosage: 80 MG, 1X/DAY
     Route: 048
     Dates: end: 20100429
  5. KARDEGIC [Suspect]
     Indication: ISCHAEMIC HEART DISEASE PROPHYLAXIS
     Dosage: 1 DF, 1X/DAY
     Route: 048
     Dates: end: 20100429
  6. HALDOL [Suspect]
     Indication: ABNORMAL BEHAVIOUR
     Dosage: 20 GTT, 2X/DAY
     Route: 048
     Dates: start: 20100414, end: 20100429
  7. HALDOL [Suspect]
     Dosage: 10 MG, 1X/DAY
     Route: 030
     Dates: start: 20100429, end: 20100429
  8. EQUANIL [Concomitant]
     Dosage: 800 MG, UNK
     Route: 048

REACTIONS (3)
  - LYMPHOPENIA [None]
  - NEUTROPENIA [None]
  - THROMBOCYTOPENIA [None]
